FAERS Safety Report 8694316 (Version 3)
Quarter: 2012Q4

REPORT INFORMATION
  Report Type: 
  Country: US (occurrence: US)
  Receive Date: 20120731
  Receipt Date: 20121121
  Transmission Date: 20130627
  Serious: Yes (Hospitalization, Other)
  Sender: FDA-Public Use
  Company Number: US-BAYER-2012-074516

PATIENT
  Age: 20 Year
  Sex: Female
  Weight: 118 kg

DRUGS (1)
  1. MIRENA [Suspect]
     Indication: CONTRACEPTION
     Dosage: 20 mcg/24hr, CONT
     Route: 015
     Dates: start: 20110105, end: 20120420

REACTIONS (6)
  - Pregnancy with contraceptive device [Recovered/Resolved]
  - Amniorrhoea [None]
  - Stillbirth [Recovered/Resolved]
  - Placental disorder [Recovered/Resolved]
  - Postpartum depression [None]
  - Drug ineffective [None]
